FAERS Safety Report 6300295-3 (Version None)
Quarter: 2009Q3

REPORT INFORMATION
  Report Type: 
  Country: None (occurrence: None)
  Receive Date: 20090803
  Receipt Date: 20090720
  Transmission Date: 20100115
  Serious: Yes (Hospitalization)
  Sender: FDA-Public Use
  Company Number: 2009AL004912

PATIENT
  Age: 65 Year
  Sex: Female

DRUGS (15)
  1. RAMIPRIL [Suspect]
     Indication: HYPERTENSION
     Dosage: 2.5 MG;QD;PO
     Route: 048
     Dates: start: 20080901, end: 20081009
  2. FEVERALL [Suspect]
     Indication: PAIN
     Dosage: 1 GM;TID;PO
     Route: 048
     Dates: start: 20080905, end: 20081003
  3. SPIRONOLACTONE [Suspect]
     Indication: HYPERTENSION
     Dosage: 100 MG;QD;PO
     Route: 048
     Dates: start: 20080901, end: 20081009
  4. TORASEMIDE [Concomitant]
  5. XIPAMIDE [Concomitant]
  6. AMIODARONE HCL [Concomitant]
  7. METAMIZOLE [Concomitant]
  8. LINEZOLID [Concomitant]
  9. AMITRIPTYLINE [Concomitant]
  10. BELOC ZOK [Concomitant]
  11. CLEXANE [Concomitant]
  12. OMEPRAZOLE [Concomitant]
  13. OXYCODONE [Concomitant]
  14. SIMVASTATIN [Concomitant]
  15. DIGITOXIN [Concomitant]

REACTIONS (1)
  - RENAL FAILURE ACUTE [None]
